FAERS Safety Report 9095972 (Version 2)
Quarter: 2013Q1

REPORT INFORMATION
  Report Type: Spontaneous
  Country: US (occurrence: US)
  Receive Date: 20130207
  Receipt Date: 20130318
  Transmission Date: 20140127
  Serious: Yes (Other)
  Sender: FDA-Public Use
  Company Number: US-TEVA-384458USA

PATIENT
  Sex: Female

DRUGS (2)
  1. CLOZAPINE [Suspect]
     Indication: SCHIZOPHRENIA
  2. CLOZAPINE [Suspect]
     Indication: PSYCHOTIC DISORDER

REACTIONS (3)
  - Breast cancer metastatic [Unknown]
  - White blood cell count decreased [Unknown]
  - Neutrophil count decreased [Unknown]
